FAERS Safety Report 15330577 (Version 2)
Quarter: 2018Q3

REPORT INFORMATION
  Report Type: Spontaneous
  Country: US (occurrence: US)
  Receive Date: 20180829
  Receipt Date: 20180927
  Transmission Date: 20181010
  Serious: Yes (Hospitalization, Other)
  Sender: FDA-Public Use
  Company Number: US-HIKMA PHARMACEUTICALS USA INC.-US-H14001-18-07078

PATIENT
  Age: 57 Year
  Sex: Female

DRUGS (5)
  1. PREDNISONE. [Suspect]
     Active Substance: PREDNISONE
     Route: 048
     Dates: start: 20180702
  2. PREDNISONE. [Suspect]
     Active Substance: PREDNISONE
     Route: 048
     Dates: start: 20180731, end: 20180814
  3. INCB039110 [Suspect]
     Active Substance: INVESTIGATIONAL PRODUCT
     Indication: ACUTE GRAFT VERSUS HOST DISEASE
     Route: 065
     Dates: start: 20180702, end: 20180724
  4. PREDNISONE. [Suspect]
     Active Substance: PREDNISONE
     Indication: ACUTE GRAFT VERSUS HOST DISEASE
     Route: 048
     Dates: start: 20180702
  5. PROGRAF [Concomitant]
     Active Substance: TACROLIMUS\TACROLIMUS ANHYDROUS
     Indication: PRODUCT USED FOR UNKNOWN INDICATION
     Route: 065
     Dates: start: 20180522

REACTIONS (2)
  - Atrial fibrillation [Recovering/Resolving]
  - Atrial flutter [Recovering/Resolving]

NARRATIVE: CASE EVENT DATE: 20180724
